FAERS Safety Report 9808265 (Version 3)
Quarter: 2014Q1

REPORT INFORMATION
  Report Type: Report from Study
  Country: US (occurrence: US)
  Receive Date: 20140110
  Receipt Date: 20140115
  Transmission Date: 20141002
  Serious: Yes (Life-Threatening, Hospitalization)
  Sender: FDA-Public Use
  Company Number: US-CELGENEUS-163-C4047-13122677

PATIENT
  Age: 84 Year
  Sex: Male
  Weight: 88.9 kg

DRUGS (15)
  1. CC-4047 [Suspect]
     Indication: CENTRAL NERVOUS SYSTEM LYMPHOMA
     Dosage: 3 MILLIGRAM
     Route: 048
     Dates: start: 20131108
  2. CC-4047 [Suspect]
     Dosage: 3 MILLIGRAM
     Route: 048
     Dates: start: 20131206, end: 20131211
  3. ALLOPURINOL [Concomitant]
     Indication: GOUT
     Dosage: 300 MILLIGRAM
     Route: 048
  4. COLCHICINE [Concomitant]
     Indication: GOUT
     Dosage: .6 MILLIGRAM
     Route: 048
  5. ESOMEPRAZOLE [Concomitant]
     Indication: PRODUCT USED FOR UNKNOWN INDICATION
     Dosage: 20 MILLIGRAM
     Route: 048
  6. FERROUS SULFATE [Concomitant]
     Indication: ANAEMIA
     Dosage: 325 MILLIGRAM
     Route: 048
  7. VESICARE [Concomitant]
     Indication: HYPERTONIC BLADDER
     Dosage: 5 MILLIGRAM
     Route: 048
  8. BISACODYL [Concomitant]
     Indication: PRODUCT USED FOR UNKNOWN INDICATION
     Dosage: 5 MILLIGRAM
     Route: 048
  9. ONDANSETRON [Concomitant]
     Indication: NAUSEA
     Dosage: 16 MILLIGRAM
     Route: 048
  10. ONDANSETRON [Concomitant]
     Indication: VOMITING
  11. ASA [Concomitant]
     Indication: THROMBOSIS PROPHYLAXIS
     Dosage: 325 MILLIGRAM
     Route: 048
  12. METOPROLOL [Concomitant]
     Indication: AORTIC STENOSIS
     Dosage: 50 MILLIGRAM
     Route: 048
  13. POTASSIUM CHLORIDE [Concomitant]
     Indication: HYPOKALAEMIA
     Dosage: 20 MILLIEQUIVALENTS
     Route: 048
  14. TEMODAR [Concomitant]
     Indication: NON-HODGKIN^S LYMPHOMA
     Route: 065
  15. RITUXAN [Concomitant]
     Indication: NON-HODGKIN^S LYMPHOMA
     Route: 065

REACTIONS (3)
  - Respiratory failure [Recovered/Resolved]
  - Lung infection [Recovered/Resolved]
  - Cardiac failure [Recovered/Resolved]
